FAERS Safety Report 24981652 (Version 3)
Quarter: 2025Q1

REPORT INFORMATION
  Report Type: Report from Study
  Country: JP (occurrence: JP)
  Receive Date: 20250218
  Receipt Date: 20250221
  Transmission Date: 20250409
  Serious: Yes (Death)
  Sender: PFIZER
  Company Number: JP-PFIZER INC-PV202500019310

PATIENT
  Age: 82 Year
  Sex: Male

DRUGS (1)
  1. ELRANATAMAB [Suspect]
     Active Substance: ELRANATAMAB
     Dates: end: 20241210

REACTIONS (4)
  - Pneumonia aspiration [Fatal]
  - Rash [Unknown]
  - Ocular hyperaemia [Unknown]
  - Conjunctival oedema [Unknown]
